FAERS Safety Report 22632945 (Version 1)
Quarter: 2023Q2

REPORT INFORMATION
  Report Type: Report from Study
  Country: US (occurrence: US)
  Receive Date: 20230623
  Receipt Date: 20230623
  Transmission Date: 20230721
  Serious: Yes (Other)
  Sender: FDA-Public Use
  Company Number: US-ABBVIE-5299371

PATIENT
  Sex: Male

DRUGS (1)
  1. VENCLEXTA [Suspect]
     Active Substance: VENETOCLAX
     Indication: Chronic lymphocytic leukaemia recurrent
     Dosage: TIME INTERVAL: 0.33333333 DAYS: FORM STRENGTH: 100 MG/TAKE 3 TABLETS BY MOUTH ONCE DAILY WITH FOO...
     Route: 048

REACTIONS (5)
  - Transfusion [Unknown]
  - Muscular weakness [Unknown]
  - Chills [Unknown]
  - Pain in extremity [Unknown]
  - Hypertension [Unknown]
